FAERS Safety Report 8764531 (Version 2)
Quarter: 2012Q4

REPORT INFORMATION
  Report Type: Report from Study
  Country: FR (occurrence: FR)
  Receive Date: 20120831
  Receipt Date: 20120920
  Transmission Date: 20130627
  Serious: Yes (Hospitalization)
  Sender: FDA-Public Use
  Company Number: FR-BAXTER-2012BAX015084

PATIENT
  Age: 56 Year
  Sex: Female
  Weight: 56 kg

DRUGS (3)
  1. ENDOXAN 2000 MG, LYOPHILISAT POUR SOLUTION INJECTABLE [Suspect]
     Indication: BREAST CANCER
     Dates: end: 20120626
  2. FLUOROURACIL [Suspect]
     Indication: BREAST CANCER
     Dates: end: 20120626
  3. EPIRUBICIN [Suspect]
     Indication: BREAST CANCER
     Dates: end: 20120626

REACTIONS (1)
  - Dehydration [Recovered/Resolved]
